FAERS Safety Report 4385460-7 (Version None)
Quarter: 2004Q2

REPORT INFORMATION
  Report Type: 
  Country: None (occurrence: None)
  Receive Date: 20040622
  Receipt Date: 20040604
  Transmission Date: 20050107
  Serious: Yes (Hospitalization)
  Sender: FDA-Public Use
  Company Number: 6009106

PATIENT
  Age: 24 Hour
  Sex: Male

DRUGS (3)
  1. LEVOTHYROXINE SODIUM [Suspect]
     Route: 064
  2. DEPAMIDE (TABLETS) (VALPROMIDE) [Suspect]
     Indication: BIPOLAR DISORDER
     Dosage: (6 IN 1 D)
     Route: 064
     Dates: start: 19990101
  3. PROZAC [Suspect]
     Dosage: (2 IN 1D)
     Route: 064
     Dates: start: 19990101

REACTIONS (3)
  - DRUG EXPOSURE DURING PREGNANCY [None]
  - PREMATURE CLOSURE OF CRANIAL SUTURES [None]
  - SKULL MALFORMATION [None]
